FAERS Safety Report 11013516 (Version 2)
Quarter: 2015Q2

REPORT INFORMATION
  Report Type: Spontaneous
  Country: US (occurrence: US)
  Receive Date: 20150411
  Receipt Date: 20150525
  Transmission Date: 20150821
  Serious: No
  Sender: FDA-Public Use
  Company Number: US-JNJFOC-20140414865

PATIENT
  Age: 33 Year
  Sex: Female
  Weight: 98.52 kg

DRUGS (8)
  1. ACETAMINOPHEN. [Concomitant]
     Active Substance: ACETAMINOPHEN
     Indication: PREMEDICATION
     Route: 065
  2. REMICADE [Suspect]
     Active Substance: INFLIXIMAB
     Indication: COLITIS ULCERATIVE
     Dosage: 4TH INFUSION
     Route: 042
     Dates: start: 20140418
  3. COLAZAL [Concomitant]
     Active Substance: BALSALAZIDE DISODIUM
     Route: 065
  4. TRI-LEVLEN [Concomitant]
     Active Substance: ETHINYL ESTRADIOL\LEVONORGESTREL
     Route: 065
  5. PREDNISONE. [Concomitant]
     Active Substance: PREDNISONE
     Route: 065
  6. PROBIOTIC [Concomitant]
     Active Substance: PROBIOTICS NOS
     Route: 065
  7. REMICADE [Suspect]
     Active Substance: INFLIXIMAB
     Indication: COLITIS ULCERATIVE
     Route: 042
     Dates: start: 20140109
  8. DIPHENHYDRAMINE [Concomitant]
     Active Substance: DIPHENHYDRAMINE
     Indication: PREMEDICATION
     Route: 048

REACTIONS (1)
  - Infusion related reaction [Recovered/Resolved]

NARRATIVE: CASE EVENT DATE: 20140418
